FAERS Safety Report 5006790-1 (Version None)
Quarter: 2006Q2

REPORT INFORMATION
  Report Type: 
  Country: None (occurrence: None)
  Receive Date: 20060516
  Receipt Date: 20060412
  Transmission Date: 20061013
  Serious: Yes (Other)
  Sender: FDA-Public Use
  Company Number: 2006052029

PATIENT
  Age: 62 Year
  Sex: Female

DRUGS (5)
  1. GENOTROPIN [Suspect]
     Indication: BODY HEIGHT BELOW NORMAL
     Dosage: 1.8 MG (1.8 MG, 1X/DAY INTERVAL) EVERYDAY
     Dates: start: 19981126, end: 20050101
  2. SYNTHROID [Concomitant]
  3. DRUG, UNSPECIFIED [Concomitant]
  4. DHEA (PRASTERONE) [Concomitant]
  5. ESTRADIOL [Concomitant]

REACTIONS (1)
  - PITUITARY TUMOUR [None]
